FAERS Safety Report 7749656-6 (Version None)
Quarter: 2011Q3

REPORT INFORMATION
  Report Type: 
  Country: None (occurrence: None)
  Receive Date: 20110914
  Receipt Date: 20110905
  Transmission Date: 20111222
  Serious: Yes (Death, Hospitalization)
  Sender: FDA-Public Use
  Company Number: JP-BAYER-2011-047363

PATIENT
  Age: 76 Year
  Sex: Male
  Weight: 52 kg

DRUGS (8)
  1. NEXAVAR [Suspect]
     Indication: HEPATIC NEOPLASM MALIGNANT
     Dosage: 200 MG, BID
     Route: 048
     Dates: start: 20110318, end: 20110727
  2. SPIRIVA [Concomitant]
     Dosage: 18 ?G, DAILY
     Route: 055
     Dates: start: 20030101, end: 20110728
  3. AMINOLEBAN EN [Concomitant]
     Dosage: 50 G, DAILY
     Route: 048
     Dates: start: 20030101, end: 20110728
  4. THEO-DUR [Concomitant]
     Dosage: 200 MG, DAILY
     Route: 048
     Dates: start: 20030101, end: 20110728
  5. RABEPRAZOLE SODIUM [Concomitant]
     Dosage: 10 MG, DAILY
     Route: 048
     Dates: start: 20030101, end: 20110728
  6. MUCOSOLVAN L [Concomitant]
     Dosage: 45 MG, DAILY
     Route: 048
     Dates: start: 20030101, end: 20110728
  7. EPLERENONE [Concomitant]
     Dosage: 50 MG, DAILY
     Route: 048
     Dates: start: 20030101, end: 20110728
  8. URSO 250 [Concomitant]
     Dosage: 600 MG, DAILY
     Route: 048
     Dates: start: 20030101, end: 20110728

REACTIONS (5)
  - CARDIO-RESPIRATORY ARREST [None]
  - PYREXIA [None]
  - HAEMATEMESIS [None]
  - PALMAR-PLANTAR ERYTHRODYSAESTHESIA SYNDROME [None]
  - MALAISE [None]
